FAERS Safety Report 22152800 (Version 1)
Quarter: 2023Q1

REPORT INFORMATION
  Report Type: Spontaneous
  Country: CR (occurrence: CR)
  Receive Date: 20230329
  Receipt Date: 20230329
  Transmission Date: 20230417
  Serious: Yes (Other)
  Sender: FDA-Public Use
  Company Number: CR-MLMSERVICE-20230316-4168225-1

PATIENT
  Age: 78 Year
  Sex: Male

DRUGS (11)
  1. FLUOXETINE HYDROCHLORIDE [Interacting]
     Active Substance: FLUOXETINE HYDROCHLORIDE
     Indication: Depression
     Dosage: 20 MG FLUOXETINE EVERY 12 OR 8 HOURS, DEPENDING ON HIS MOOD
     Route: 065
     Dates: start: 202206, end: 202209
  2. FLUOXETINE HYDROCHLORIDE [Interacting]
     Active Substance: FLUOXETINE HYDROCHLORIDE
     Dosage: 20 MG FLUOXETINE EVERY 12 OR 8 HOURS, DEPENDING ON HIS MOOD
     Route: 065
     Dates: start: 202206, end: 202209
  3. DIMENHYDRINATE [Interacting]
     Active Substance: DIMENHYDRINATE
     Indication: Nausea
     Route: 065
     Dates: start: 202206, end: 202209
  4. HYDROXYUREA [Concomitant]
     Active Substance: HYDROXYUREA
     Indication: Thrombosis
     Route: 065
     Dates: start: 202204
  5. ENALAPRIL [Concomitant]
     Active Substance: ENALAPRIL
     Indication: Hypertension
     Route: 065
  6. METFORMIN [Concomitant]
     Active Substance: METFORMIN HYDROCHLORIDE
     Indication: Diabetes mellitus
     Route: 065
  7. OMEPRAZOLE [Concomitant]
     Active Substance: OMEPRAZOLE
     Indication: Hypertension
     Route: 065
  8. FAMOTIDINE [Concomitant]
     Active Substance: FAMOTIDINE
     Indication: Dyspepsia
     Route: 065
  9. LOVASTATIN [Concomitant]
     Active Substance: LOVASTATIN
     Indication: Hypercholesterolaemia
     Route: 065
  10. ALKA-SELTZER [Concomitant]
     Active Substance: ANHYDROUS CITRIC ACID\ASPIRIN\SODIUM BICARBONATE
     Indication: Dyspepsia
     Route: 065
  11. ALUMINIUM HYDROXIDE;ALUMINIUM HYDROXIDE-MAGNE [Concomitant]
     Indication: Hypertension
     Route: 065

REACTIONS (4)
  - Drug interaction [Recovering/Resolving]
  - Self-medication [Recovered/Resolved]
  - Cholinergic syndrome [Recovering/Resolving]
  - Serotonin syndrome [Recovering/Resolving]

NARRATIVE: CASE EVENT DATE: 20220601
